FAERS Safety Report 18723727 (Version 1)
Quarter: 2021Q1

REPORT INFORMATION
  Report Type: Other
  Country: FR (occurrence: FR)
  Receive Date: 20210111
  Receipt Date: 20210111
  Transmission Date: 20210419
  Serious: Yes (Other)
  Sender: FDA-Public Use
  Company Number: FR-DEXPHARM-20201198

PATIENT
  Age: 50 Year
  Sex: Male

DRUGS (6)
  1. PARACETAMOL/CODEINE [Suspect]
     Active Substance: ACETAMINOPHEN\CODEINE PHOSPHATE
  2. IOHEXOL [Interacting]
     Active Substance: IOHEXOL
  3. ESOMEPRAZOLE. [Interacting]
     Active Substance: ESOMEPRAZOLE MAGNESIUM
  4. ZOPICLONE [Interacting]
     Active Substance: ZOPICLONE
  5. ATORVASTATIN [Interacting]
     Active Substance: ATORVASTATIN
  6. TICAGRELOR. [Interacting]
     Active Substance: TICAGRELOR

REACTIONS (3)
  - Hepatocellular injury [Recovering/Resolving]
  - Drug interaction [Unknown]
  - Rash maculo-papular [Recovering/Resolving]
